FAERS Safety Report 23713917 (Version 2)
Quarter: 2024Q2

REPORT INFORMATION
  Report Type: Spontaneous
  Country: HR (occurrence: HR)
  Receive Date: 20240405
  Receipt Date: 20240407
  Transmission Date: 20240716
  Serious: Yes (Other)
  Sender: FDA-Public Use
  Company Number: HR-002147023-NVSC2024HR072692

PATIENT
  Sex: Male

DRUGS (1)
  1. KESIMPTA [Suspect]
     Active Substance: OFATUMUMAB
     Indication: Multiple sclerosis
     Dosage: UNK
     Route: 065
     Dates: start: 202205

REACTIONS (3)
  - Periventricular leukomalacia [Unknown]
  - CD19 lymphocytes decreased [Unknown]
  - Intention tremor [Unknown]

NARRATIVE: CASE EVENT DATE: 20221101
